FAERS Safety Report 15505648 (Version 1)
Quarter: 2018Q4

REPORT INFORMATION
  Report Type: Report from Study
  Country: GB (occurrence: GB)
  Receive Date: 20181016
  Receipt Date: 20181016
  Transmission Date: 20190205
  Serious: Yes (Other)
  Sender: FDA-Public Use
  Company Number: GB-ROCHE-2199396

PATIENT

DRUGS (2)
  1. GANCICLOVIR. [Suspect]
     Active Substance: GANCICLOVIR
     Indication: INFLAMMATORY BOWEL DISEASE
     Route: 042
  2. VALGANCICLOVIR. [Suspect]
     Active Substance: VALGANCICLOVIR
     Indication: INFLAMMATORY BOWEL DISEASE
     Route: 048

REACTIONS (7)
  - Oropharyngeal pain [Unknown]
  - Alopecia [Unknown]
  - Transfusion reaction [Recovered/Resolved]
  - Eye pain [Unknown]
  - Pain [Unknown]
  - Infusion related reaction [Recovered/Resolved]
  - Arthralgia [Unknown]
